FAERS Safety Report 15916230 (Version 1)
Quarter: 2019Q1

REPORT INFORMATION
  Report Type: Spontaneous
  Country: US (occurrence: US)
  Receive Date: 20190204
  Receipt Date: 20190204
  Transmission Date: 20190417
  Serious: Yes (Hospitalization, Other)
  Sender: FDA-Public Use
  Company Number: US-BEXIMCO-2019BEX00004

PATIENT
  Age: 50 Year
  Sex: Female
  Weight: 30 kg

DRUGS (3)
  1. METFORMIN HYDROCHLORIDE. [Suspect]
     Active Substance: METFORMIN HYDROCHLORIDE
     Indication: MOOD ALTERED
     Dosage: TWO 850 MG TABLETS SEVERAL TIMES DAILY
     Route: 048
  2. METFORMIN HYDROCHLORIDE. [Suspect]
     Active Substance: METFORMIN HYDROCHLORIDE
     Indication: WEIGHT CONTROL
  3. METFORMIN HYDROCHLORIDE. [Suspect]
     Active Substance: METFORMIN HYDROCHLORIDE
     Indication: PURGING

REACTIONS (10)
  - Intentional product misuse [Recovered/Resolved]
  - Toxicity to various agents [Recovered/Resolved]
  - Hypoglycaemia [Unknown]
  - Lactic acidosis [Recovered/Resolved]
  - Hallucination, visual [Recovered/Resolved]
  - Shock [Recovered/Resolved]
  - Hypothermia [Recovered/Resolved]
  - Renal tubular necrosis [Not Recovered/Not Resolved]
  - Intentional overdose [Recovered/Resolved]
  - Acute kidney injury [Recovering/Resolving]
